FAERS Safety Report 11520838 (Version 1)
Quarter: 2015Q3

REPORT INFORMATION
  Report Type: Spontaneous
  Country: US (occurrence: None)
  Receive Date: 20150917
  Receipt Date: 20150917
  Transmission Date: 20151125
  Serious: Yes (Other)
  Sender: FDA-Public Use
  Company Number: None

PATIENT
  Age: 75 Year
  Sex: Female
  Weight: 49.9 kg

DRUGS (1)
  1. FENTANYL. [Suspect]
     Active Substance: FENTANYL
     Dosage: ONE PATCH  EVERY 72 HOURS  TRANSDERMAL
     Route: 062
     Dates: start: 20150901, end: 20150916

REACTIONS (3)
  - Condition aggravated [None]
  - Pain [None]
  - Product adhesion issue [None]

NARRATIVE: CASE EVENT DATE: 20150912
